FAERS Safety Report 8862255 (Version 3)
Quarter: 2012Q4

REPORT INFORMATION
  Report Type: 
  Country: US (occurrence: US)
  Receive Date: 20121026
  Receipt Date: 20121113
  Transmission Date: 20130627
  Serious: Yes (Hospitalization)
  Sender: FDA-Public Use
  Company Number: US-PERRIGO-12US009144

PATIENT
  Age: 39 Year
  Sex: Male
  Weight: 91.16 kg

DRUGS (4)
  1. NAPROXEN SODIUM\PSEUDOEPHEDRINE HYDROCHLORIDE [Suspect]
     Indication: SEASONAL ALLERGY
     Dosage: 1 caplet, PRN, 3-4 times a week
     Route: 048
     Dates: start: 20110108, end: 20110624
  2. NAPROXEN SODIUM\PSEUDOEPHEDRINE HYDROCHLORIDE [Suspect]
     Indication: SINUSITIS
  3. SUDAFED 24 HOUR [Suspect]
     Indication: SEASONAL ALLERGY
     Dosage: 1 tablet, qd prn
     Route: 048
     Dates: end: 20110624
  4. SUDAFED 24 HOUR [Suspect]
     Indication: SINUSITIS

REACTIONS (6)
  - Gastric ulcer haemorrhage [Recovered/Resolved]
  - Intestinal ulcer perforation [Recovered/Resolved]
  - Anaemia [Recovered/Resolved]
  - Asthenia [Recovered/Resolved]
  - Fatigue [Recovered/Resolved]
  - Palpitations [Recovered/Resolved]
